FAERS Safety Report 8309754-5 (Version None)
Quarter: 2012Q2

REPORT INFORMATION
  Report Type: 
  Country: None (occurrence: None)
  Receive Date: 20120425
  Receipt Date: 20120413
  Transmission Date: 20120825
  Serious: Yes (Other)
  Sender: FDA-Public Use
  Company Number: PHHY2012GB032118

PATIENT
  Age: 27 Year
  Sex: Female

DRUGS (3)
  1. IMMUNE GLOBULIN NOS [Concomitant]
     Dosage: 0.4 G/KG, UNK
     Route: 042
  2. CYCLOSPORINE [Suspect]
  3. METHYLPREDNISOLONE [Concomitant]
     Dosage: 30 MG, BID

REACTIONS (2)
  - VENOUS THROMBOSIS [None]
  - PULMONARY EMBOLISM [None]
